FAERS Safety Report 18683209 (Version 1)
Quarter: 2020Q4

REPORT INFORMATION
  Report Type: Spontaneous
  Country: ES (occurrence: ES)
  Receive Date: 20201230
  Receipt Date: 20201230
  Transmission Date: 20210114
  Serious: Yes (Other)
  Sender: FDA-Public Use
  Company Number: ES-009507513-2012ESP011119

PATIENT
  Sex: Male

DRUGS (2)
  1. JANUMET [Suspect]
     Active Substance: METFORMIN HYDROCHLORIDE\SITAGLIPTIN PHOSPHATE
     Indication: TYPE 2 DIABETES MELLITUS
     Dosage: ONE TABLET IN THE MAIN MEAL
     Route: 048
     Dates: start: 2015, end: 2020
  2. JANUMET [Suspect]
     Active Substance: METFORMIN HYDROCHLORIDE\SITAGLIPTIN PHOSPHATE
     Dosage: SPLIT IN THREE PARTS IN A DISTANT MOMENT OF THE MAIN MEAL: AT THE BEGINNING, DURING AND AT THE END.
     Route: 048
     Dates: start: 2020

REACTIONS (6)
  - Dysphagia [Unknown]
  - Laryngeal disorder [Unknown]
  - Product size issue [Unknown]
  - Incorrect dose administered [Unknown]
  - Wrong technique in product usage process [Unknown]
  - Inappropriate schedule of product administration [Unknown]

NARRATIVE: CASE EVENT DATE: 2015
